FAERS Safety Report 6128510-X (Version None)
Quarter: 2009Q1

REPORT INFORMATION
  Report Type: 
  Country: None (occurrence: None)
  Receive Date: 20090323
  Receipt Date: 20090318
  Transmission Date: 20090719
  Serious: Yes (Hospitalization)
  Sender: FDA-Public Use
  Company Number: FR-ASTRAZENECA-2009CG00545

PATIENT
  Age: 25470 Day
  Sex: Male

DRUGS (6)
  1. CASODEX [Suspect]
     Indication: PROSTATE CANCER
     Route: 048
     Dates: start: 20090128
  2. MABTHERA [Concomitant]
  3. LYRICA [Concomitant]
  4. TRAMADOL HCL [Concomitant]
  5. GLICLAZIDE [Concomitant]
  6. ACTOS [Concomitant]

REACTIONS (1)
  - AGRANULOCYTOSIS [None]
